FAERS Safety Report 5120486-7 (Version None)
Quarter: 2006Q4

REPORT INFORMATION
  Report Type: 
  Country: None (occurrence: None)
  Receive Date: 20061004
  Receipt Date: 20060919
  Transmission Date: 20070319
  Serious: Yes (Hospitalization)
  Sender: FDA-Public Use
  Company Number: US-ROCHE-464116

PATIENT
  Age: 80 Year
  Sex: Female
  Weight: 53.1 kg

DRUGS (9)
  1. BONIVA [Suspect]
     Indication: OSTEOPOROSIS
     Route: 048
     Dates: start: 20060801, end: 20060901
  2. ASPIRIN [Concomitant]
     Indication: OSTEOPOROSIS
     Route: 048
  3. ZOCOR [Concomitant]
     Route: 048
  4. ATENOLOL [Concomitant]
     Route: 048
  5. SYNTHROID [Concomitant]
     Route: 048
  6. NITROGLYCERIN [Concomitant]
     Route: 061
  7. NEXIUM [Concomitant]
     Indication: DRUG USE FOR UNKNOWN INDICATION
     Route: 048
  8. RESTORIL [Concomitant]
     Indication: SOMNOLENCE
     Dosage: TAKEN AT NIGHT
     Route: 048
  9. VIOKASE [Concomitant]
     Route: 048

REACTIONS (5)
  - CHEST PAIN [None]
  - DIARRHOEA [None]
  - MUSCLE SPASMS [None]
  - MUSCULOSKELETAL PAIN [None]
  - PAIN [None]
